FAERS Safety Report 10857305 (Version 1)
Quarter: 2015Q1

REPORT INFORMATION
  Report Type: Spontaneous
  Country: US (occurrence: US)
  Receive Date: 20150223
  Receipt Date: 20150223
  Transmission Date: 20150721
  Serious: Yes (Other)
  Sender: FDA-Public Use
  Company Number: US-CELGENEUS-163-21880-14014806

PATIENT
  Age: 75 Year
  Sex: Male
  Weight: 88.53 kg

DRUGS (5)
  1. REVLIMID [Suspect]
     Active Substance: LENALIDOMIDE
     Route: 048
     Dates: start: 2014
  2. REVLIMID [Suspect]
     Active Substance: LENALIDOMIDE
     Indication: MYELODYSPLASTIC SYNDROME
     Route: 048
     Dates: start: 201312, end: 20140116
  3. POTASSIUM [Concomitant]
     Active Substance: POTASSIUM
     Indication: PRODUCT USED FOR UNKNOWN INDICATION
     Route: 065
  4. REVLIMID [Suspect]
     Active Substance: LENALIDOMIDE
     Route: 048
     Dates: start: 201406
  5. REVLIMID [Suspect]
     Active Substance: LENALIDOMIDE
     Route: 048
     Dates: start: 2014, end: 20140403

REACTIONS (3)
  - Haemoglobin decreased [Not Recovered/Not Resolved]
  - Rash [Recovered/Resolved with Sequelae]
  - White blood cell count decreased [Not Recovered/Not Resolved]

NARRATIVE: CASE EVENT DATE: 20140117
